FAERS Safety Report 15885400 (Version 1)
Quarter: 2019Q1

REPORT INFORMATION
  Report Type: Spontaneous
  Country: FR (occurrence: FR)
  Receive Date: 20190129
  Receipt Date: 20190129
  Transmission Date: 20190417
  Serious: Yes (Other)
  Sender: FDA-Public Use
  Company Number: FR-TEVA-2019-FR-1003880

PATIENT
  Age: 36 Year
  Sex: Female
  Weight: 133 kg

DRUGS (3)
  1. GLICLAZIDE [Suspect]
     Active Substance: GLICLAZIDE
     Indication: DIABETES MELLITUS
     Route: 048
     Dates: start: 201706
  2. LOSARTAN POTASSIQUE [Suspect]
     Active Substance: LOSARTAN POTASSIUM
     Indication: HYPERTENSION
     Route: 048
     Dates: start: 201603
  3. VELMETIA [Suspect]
     Active Substance: METFORMIN\SITAGLIPTIN
     Indication: DIABETES MELLITUS
     Route: 048
     Dates: start: 201603

REACTIONS (2)
  - Hepatic steatosis [Not Recovered/Not Resolved]
  - Hepatic fibrosis [Not Recovered/Not Resolved]

NARRATIVE: CASE EVENT DATE: 201712
